FAERS Safety Report 15411278 (Version 5)
Quarter: 2018Q4

REPORT INFORMATION
  Report Type: Spontaneous
  Country: US (occurrence: US)
  Receive Date: 20180921
  Receipt Date: 20181121
  Transmission Date: 20190204
  Serious: Yes (Other)
  Sender: FDA-Public Use
  Company Number: US-PFIZER INC-2018379019

PATIENT
  Age: 70 Year
  Sex: Female

DRUGS (2)
  1. LATANOPROST. [Suspect]
     Active Substance: LATANOPROST
     Indication: EYE DISORDER
     Dosage: 1 GTT, DAILY
     Route: 047
     Dates: start: 2018, end: 20180924
  2. LATANOPROST. [Suspect]
     Active Substance: LATANOPROST
     Indication: GLAUCOMA
     Dosage: 2 GTT, 1X/DAY
     Route: 047
     Dates: start: 2018

REACTIONS (14)
  - Swelling face [Recovering/Resolving]
  - Dyspnoea [Recovering/Resolving]
  - Erythema [Recovering/Resolving]
  - Accidental overdose [Recovering/Resolving]
  - Product quality issue [Recovering/Resolving]
  - Eye swelling [Recovering/Resolving]
  - Eye inflammation [Recovering/Resolving]
  - Oropharyngeal pain [Recovering/Resolving]
  - Upper-airway cough syndrome [Recovering/Resolving]
  - Drug ineffective [Recovering/Resolving]
  - Carotid sinus syndrome [Recovering/Resolving]
  - Nausea [Recovering/Resolving]
  - Incorrect dose administered by product [Recovering/Resolving]
  - Ocular hyperaemia [Recovering/Resolving]

NARRATIVE: CASE EVENT DATE: 2018
